FAERS Safety Report 9193139 (Version 3)
Quarter: 2013Q2

REPORT INFORMATION
  Report Type: Report from Study
  Country: US (occurrence: US)
  Receive Date: 20130327
  Receipt Date: 20130422
  Transmission Date: 20140414
  Serious: Yes (Hospitalization, Other)
  Sender: FDA-Public Use
  Company Number: US-VERTEX PHARMACEUTICALS INC.-2013-004122

PATIENT
  Age: 57 Year
  Sex: Male
  Weight: 124 kg

DRUGS (9)
  1. VX-950 (TELAPREVIR) [Suspect]
     Indication: HEPATITIS C
     Dosage: 1125 MG, BID
     Route: 048
     Dates: start: 20130118
  2. PEGASYS [Suspect]
     Indication: HEPATITIS C
     Dosage: 180 ?G, QW
     Route: 058
     Dates: start: 20130118
  3. RIBASPHERE [Suspect]
     Indication: HEPATITIS C
     Dosage: 200MG IN AM/ 400MG IN PM
     Route: 048
     Dates: start: 20130118
  4. XANAX [Concomitant]
     Dosage: 0.5 MG, PRN
     Route: 048
  5. NADOLOL [Concomitant]
     Dosage: 20 MG, QD
     Route: 048
  6. LEVOCETIRIZINE [Concomitant]
     Dosage: 5 MG, QD
     Route: 048
  7. TRIAMCINOLONE [Concomitant]
     Dosage: 0.1 %, PRN
     Route: 061
  8. IMODIUM A-D [Concomitant]
     Dosage: 2 MG, UNK
  9. BENADRYL [Concomitant]
     Dosage: 25 MG, PRN
     Route: 048

REACTIONS (9)
  - Sepsis [Unknown]
  - Cellulitis [Unknown]
  - Dyspnoea [Unknown]
  - Asthenia [Unknown]
  - Haemoglobin decreased [Unknown]
  - Pain in extremity [Unknown]
  - Pyrexia [Unknown]
  - Rash erythematous [Recovered/Resolved]
  - Haematocrit decreased [Unknown]
